FAERS Safety Report 4283060-0 (Version None)
Quarter: 2004Q1

REPORT INFORMATION
  Report Type: 
  Country: None (occurrence: None)
  Receive Date: 20040129
  Receipt Date: 20040119
  Transmission Date: 20041129
  Serious: Yes (Hospitalization)
  Sender: FDA-Public Use
  Company Number: 2004UW00940

PATIENT
  Age: 37 Year
  Sex: Male

DRUGS (1)
  1. SEROQUEL [Suspect]
     Dosage: 30000 MG

REACTIONS (3)
  - DRUG WITHDRAWAL SYNDROME [None]
  - MEDICATION ERROR [None]
  - OVERDOSE [None]
